FAERS Safety Report 6301582-5 (Version None)
Quarter: 2009Q3

REPORT INFORMATION
  Report Type: 
  Country: None (occurrence: None)
  Receive Date: 20090807
  Receipt Date: 20090728
  Transmission Date: 20100115
  Serious: Yes (Hospitalization)
  Sender: FDA-Public Use
  Company Number: JP-ABBOTT-09P-087-0587833-00

PATIENT
  Sex: Male

DRUGS (9)
  1. LEUPRORELIN DEPOT [Suspect]
     Indication: SPINAL MUSCULAR ATROPHY
     Route: 058
     Dates: start: 20070316
  2. ACTOS [Concomitant]
     Indication: DIABETES MELLITUS
     Route: 048
     Dates: start: 20090422, end: 20090607
  3. CHOLEBRINE [Concomitant]
     Indication: HYPERLIPIDAEMIA
     Route: 048
     Dates: start: 20051001, end: 20090607
  4. AMARYL [Concomitant]
     Indication: DIABETES MELLITUS
     Route: 048
     Dates: start: 20031201, end: 20070719
  5. AMARYL [Concomitant]
     Route: 048
     Dates: start: 20070720, end: 20071227
  6. AMARYL [Concomitant]
     Route: 048
     Dates: start: 20071228, end: 20080930
  7. AMARYL [Concomitant]
     Route: 048
     Dates: start: 20081001, end: 20090607
  8. GLUCOBAY [Concomitant]
     Indication: DIABETES MELLITUS
     Route: 048
     Dates: start: 20031201, end: 20070329
  9. GLUCOBAY [Concomitant]
     Route: 048
     Dates: start: 20070330, end: 20090607

REACTIONS (1)
  - DIABETES MELLITUS [None]
